FAERS Safety Report 20598706 (Version 4)
Quarter: 2022Q2

REPORT INFORMATION
  Report Type: Report from Study
  Country: JP (occurrence: JP)
  Receive Date: 20220315
  Receipt Date: 20220503
  Transmission Date: 20220720
  Serious: Yes (Death, Hospitalization, Other)
  Sender: FDA-Public Use
  Company Number: JP-BRISTOL-MYERS SQUIBB COMPANY-BMS-2022-032113

PATIENT
  Age: 63 Year
  Sex: Male
  Weight: 48 kg

DRUGS (37)
  1. CARBOPLATIN [Suspect]
     Active Substance: CARBOPLATIN
     Indication: Non-small cell lung cancer
     Dosage: MOST RECENT DOSE ON 20-JAN-2022
     Route: 065
     Dates: start: 20211215
  2. CARBOPLATIN [Suspect]
     Active Substance: CARBOPLATIN
  3. CARBOPLATIN [Suspect]
     Active Substance: CARBOPLATIN
  4. PACLITAXEL [Suspect]
     Active Substance: PACLITAXEL
     Indication: Non-small cell lung cancer
     Dosage: MOST RECENT DOSE ON 20-JAN-2022
     Route: 065
     Dates: start: 20211215
  5. PACLITAXEL [Suspect]
     Active Substance: PACLITAXEL
  6. PACLITAXEL [Suspect]
     Active Substance: PACLITAXEL
  7. NIVOLUMAB\RELATLIMAB-RMBW [Suspect]
     Active Substance: NIVOLUMAB\RELATLIMAB-RMBW
  8. NAPROXEN [Concomitant]
     Active Substance: NAPROXEN
     Indication: Product used for unknown indication
     Dosage: DAILY; PER DAY
     Route: 048
     Dates: start: 20211230
  9. NAPROXEN [Concomitant]
     Active Substance: NAPROXEN
  10. NAPROXEN [Concomitant]
     Active Substance: NAPROXEN
  11. ACETAMINOPHEN [Concomitant]
     Active Substance: ACETAMINOPHEN
     Indication: Product used for unknown indication
     Dosage: 4 TIMES PER DAY
     Route: 048
     Dates: start: 20220104
  12. SODIUM BICARBONATE [Concomitant]
     Active Substance: SODIUM BICARBONATE
     Indication: Product used for unknown indication
     Dosage: BD; TWICE PER DAY
     Route: 042
     Dates: start: 20220301, end: 20220301
  13. SODIUM BICARBONATE [Concomitant]
     Active Substance: SODIUM BICARBONATE
  14. SODIUM BICARBONATE [Concomitant]
     Active Substance: SODIUM BICARBONATE
  15. VONOPRAZAN FUMARATE [Concomitant]
     Active Substance: VONOPRAZAN FUMARATE
     Indication: Product used for unknown indication
     Dosage: DAILY; PER DAY
     Route: 048
     Dates: start: 20220302
  16. LOXOPROFEN SODIUM DIHYDRATE [Concomitant]
     Active Substance: LOXOPROFEN SODIUM DIHYDRATE
     Indication: Product used for unknown indication
     Dosage: 3 TIMES PER DAY
     Route: 048
     Dates: start: 20220107, end: 20220216
  17. LOXOPROFEN SODIUM DIHYDRATE [Concomitant]
     Active Substance: LOXOPROFEN SODIUM DIHYDRATE
  18. LOXOPROFEN SODIUM DIHYDRATE [Concomitant]
     Active Substance: LOXOPROFEN SODIUM DIHYDRATE
  19. OLODATEROL HYDROCHLORIDE\TIOTROPIUM BROMIDE MONOHYDRATE [Concomitant]
     Active Substance: OLODATEROL HYDROCHLORIDE\TIOTROPIUM BROMIDE MONOHYDRATE
     Indication: Product used for unknown indication
     Dosage: 1 DOSAGE FORM = 1 UNIT NOS, QD,
     Route: 055
     Dates: start: 20211012
  20. OLODATEROL HYDROCHLORIDE\TIOTROPIUM BROMIDE MONOHYDRATE [Concomitant]
     Active Substance: OLODATEROL HYDROCHLORIDE\TIOTROPIUM BROMIDE MONOHYDRATE
  21. OLODATEROL HYDROCHLORIDE\TIOTROPIUM BROMIDE MONOHYDRATE [Concomitant]
     Active Substance: OLODATEROL HYDROCHLORIDE\TIOTROPIUM BROMIDE MONOHYDRATE
  22. DEXTROSE [Concomitant]
     Active Substance: DEXTROSE
     Indication: Product used for unknown indication
     Dosage: 1 DOSAGE FORM = 1000 UNIT NOS, BID
     Route: 042
     Dates: start: 20220301, end: 20220301
  23. DEXTROSE [Concomitant]
     Active Substance: DEXTROSE
  24. DEXTROSE [Concomitant]
     Active Substance: DEXTROSE
  25. URSODIOL [Concomitant]
     Active Substance: URSODIOL
     Indication: Product used for unknown indication
     Dosage: 3 TIMES PER DAY,
     Route: 048
     Dates: start: 20211012
  26. URSODIOL [Concomitant]
     Active Substance: URSODIOL
  27. REBAMIPIDE [Concomitant]
     Active Substance: REBAMIPIDE
     Indication: Product used for unknown indication
     Dosage: 3 TIMES PER DAY,
     Route: 048
     Dates: start: 20220107
  28. REBAMIPIDE [Concomitant]
     Active Substance: REBAMIPIDE
  29. LUBIPROSTONE [Concomitant]
     Active Substance: LUBIPROSTONE
     Indication: Product used for unknown indication
     Dosage: 1 DOSAGE FORM=24 UNIT NOS, DAILY; PER DAY
     Route: 048
     Dates: start: 20220127
  30. LUBIPROSTONE [Concomitant]
     Active Substance: LUBIPROSTONE
  31. NIFEDIPINE [Concomitant]
     Active Substance: NIFEDIPINE
     Indication: Product used for unknown indication
     Dosage: DAILY; PER DAY, ONGOING
     Route: 048
     Dates: start: 20220127
  32. NIFEDIPINE [Concomitant]
     Active Substance: NIFEDIPINE
  33. ALLOPURINOL [Concomitant]
     Active Substance: ALLOPURINOL
     Indication: Product used for unknown indication
     Dosage: DAILY; PER DAY,
     Route: 048
     Dates: start: 20211012
  34. ALLOPURINOL [Concomitant]
     Active Substance: ALLOPURINOL
  35. MAGNESIUM OXIDE [Concomitant]
     Active Substance: MAGNESIUM OXIDE
     Indication: Product used for unknown indication
     Dosage: 3 TIMES PER DAY,
     Route: 048
     Dates: start: 20211102
  36. MAGNESIUM OXIDE [Concomitant]
     Active Substance: MAGNESIUM OXIDE
  37. COMIRNATY [Concomitant]
     Active Substance: TOZINAMERAN
     Indication: Product used for unknown indication
     Dosage: UNK
     Route: 030
     Dates: start: 20220208

REACTIONS (2)
  - Disseminated intravascular coagulation [Fatal]
  - Haemorrhage intracranial [Fatal]

NARRATIVE: CASE EVENT DATE: 20220301
